FAERS Safety Report 17381240 (Version 1)
Quarter: 2020Q1

REPORT INFORMATION
  Report Type: Spontaneous
  Country: US (occurrence: US)
  Receive Date: 20200206
  Receipt Date: 20200206
  Transmission Date: 20200409
  Serious: Yes (Death)
  Sender: FDA-Public Use
  Company Number: None

PATIENT
  Age: 48 Year
  Sex: Female
  Weight: 92.3 kg

DRUGS (3)
  1. DAUNORUBICIN [Concomitant]
     Active Substance: DAUNORUBICIN
     Dates: start: 20200117
  2. MYLOTARG [Suspect]
     Active Substance: GEMTUZUMAB OZOGAMICIN
     Indication: ACUTE MYELOID LEUKAEMIA
     Route: 042
     Dates: start: 20200127, end: 20200127
  3. CYTARABINE. [Concomitant]
     Active Substance: CYTARABINE
     Dates: start: 20200117

REACTIONS (6)
  - Subarachnoid haemorrhage [None]
  - Blood bilirubin increased [None]
  - Venoocclusive liver disease [None]
  - Alanine aminotransferase increased [None]
  - Aspartate aminotransferase increased [None]
  - Thrombocytopenia [None]

NARRATIVE: CASE EVENT DATE: 20200201
